FAERS Safety Report 5738491-6 (Version None)
Quarter: 2008Q2

REPORT INFORMATION
  Report Type: 
  Country: None (occurrence: None)
  Receive Date: 20080513
  Receipt Date: 20080429
  Transmission Date: 20081010
  Serious: Yes (Death, Hospitalization)
  Sender: FDA-Public Use
  Company Number: FACT0800080

PATIENT
  Sex: Male

DRUGS (1)
  1. FACTIVE [Suspect]
     Indication: BRONCHITIS

REACTIONS (2)
  - PNEUMONIA PNEUMOCOCCAL [None]
  - REFUSAL OF TREATMENT BY PATIENT [None]
